FAERS Safety Report 11927396 (Version 1)
Quarter: 2016Q1

REPORT INFORMATION
  Report Type: Spontaneous
  Country: US (occurrence: None)
  Receive Date: 20160115
  Receipt Date: 20160115
  Transmission Date: 20160526
  Serious: Yes (Other)
  Sender: FDA-Public Use
  Company Number: None

PATIENT
  Age: 25 Year
  Sex: Female
  Weight: 56.7 kg

DRUGS (2)
  1. PARAGARD T 380A [Suspect]
     Active Substance: COPPER
  2. PRENATALS [Concomitant]

REACTIONS (2)
  - Pregnancy with contraceptive device [None]
  - Drug administration error [None]

NARRATIVE: CASE EVENT DATE: 20151029
